FAERS Safety Report 20840320 (Version 8)
Quarter: 2024Q2

REPORT INFORMATION
  Report Type: Spontaneous
  Country: US (occurrence: US)
  Receive Date: 20220517
  Receipt Date: 20240404
  Transmission Date: 20240716
  Serious: No
  Sender: FDA-Public Use
  Company Number: US-PFIZER INC-202200659290

PATIENT
  Age: 76 Year
  Sex: Female
  Weight: 79.32 kg

DRUGS (1)
  1. IBRANCE [Suspect]
     Active Substance: PALBOCICLIB
     Indication: Breast cancer
     Dosage: DAILY FOR 3 WEEKS ON AND ONE WEEK OFF
     Route: 048

REACTIONS (1)
  - Full blood count abnormal [Recovered/Resolved]
